FAERS Safety Report 20213448 (Version 2)
Quarter: 2022Q1

REPORT INFORMATION
  Report Type: Spontaneous
  Country: JP (occurrence: JP)
  Receive Date: 20211221
  Receipt Date: 20220111
  Transmission Date: 20220423
  Serious: Yes (Death, Life-Threatening)
  Sender: FDA-Public Use
  Company Number: JP-DSJP-DSJ-2021-142158

PATIENT
  Age: 72 Year
  Sex: Male
  Weight: 70 kg

DRUGS (13)
  1. PRASUGREL HYDROCHLORIDE [Suspect]
     Active Substance: PRASUGREL HYDROCHLORIDE
     Indication: Myocardial infarction
     Dosage: 20 MG, QD
     Dates: start: 20211108, end: 20211108
  2. ASPIRIN [Concomitant]
     Active Substance: ASPIRIN
     Indication: Myocardial infarction
     Dosage: 100 MG, QD
     Dates: start: 20211108
  3. INOVAN [DOPAMINE HYDROCHLORIDE] [Concomitant]
     Indication: Cardiogenic shock
     Dosage: 720 MG
     Route: 042
     Dates: start: 20211108
  4. NOREPINEPHRINE [Concomitant]
     Active Substance: NOREPINEPHRINE
     Indication: Cardiogenic shock
     Dosage: 25 MG
     Route: 042
     Dates: start: 20211108
  5. DOBUTAMINE HYDROCHLORIDE [Concomitant]
     Active Substance: DOBUTAMINE HYDROCHLORIDE
     Indication: Cardiogenic shock
     Dosage: 720 MG
     Route: 042
     Dates: start: 20211108
  6. AMIODARONE HYDROCHLORIDE [Concomitant]
     Active Substance: AMIODARONE HYDROCHLORIDE
     Indication: Ventricular fibrillation
     Dosage: 750 MG, QD
     Route: 042
     Dates: start: 20211108
  7. OMEPRAZOLE SODIUM [Concomitant]
     Active Substance: OMEPRAZOLE SODIUM
     Indication: Myocardial infarction
     Dosage: 20 MG, BID
     Route: 042
     Dates: start: 20211108
  8. FENTANYL CITRATE [Concomitant]
     Active Substance: FENTANYL CITRATE
     Indication: Altered state of consciousness
     Dosage: 1.2 MG, QD
     Route: 042
     Dates: start: 20211108
  9. MIDAZOLAM [Concomitant]
     Active Substance: MIDAZOLAM
     Indication: Altered state of consciousness
     Dosage: 60 MG, QD
     Route: 042
     Dates: start: 20211108
  10. ROCURONIUM BROMIDE [Concomitant]
     Active Substance: ROCURONIUM BROMIDE
     Indication: Altered state of consciousness
     Dosage: 120 MG, QD
     Route: 042
     Dates: start: 20211108
  11. MEYLON [Concomitant]
     Active Substance: SODIUM BICARBONATE
     Indication: Cardiogenic shock
     Dosage: 17.5 G, QD
     Route: 042
     Dates: start: 20211108, end: 20211108
  12. CEFAZOLIN SODIUM [Concomitant]
     Active Substance: CEFAZOLIN SODIUM
     Indication: Cardiogenic shock
     Dosage: 1 G, BID
     Route: 042
     Dates: start: 20211108
  13. HEPARIN SODIUM [Concomitant]
     Active Substance: HEPARIN SODIUM
     Indication: Myocardial infarction
     Dosage: 12000 IU, QD
     Route: 042
     Dates: start: 20211108

REACTIONS (1)
  - Vascular stent thrombosis [Fatal]

NARRATIVE: CASE EVENT DATE: 20211108
